FAERS Safety Report 15664414 (Version 2)
Quarter: 2018Q4

REPORT INFORMATION
  Report Type: Spontaneous
  Country: US (occurrence: US)
  Receive Date: 20181128
  Receipt Date: 20181221
  Transmission Date: 20190205
  Serious: No
  Sender: FDA-Public Use
  Company Number: US-GLAXOSMITHKLINE-US2018211620

PATIENT
  Age: 81 Year
  Sex: Female

DRUGS (1)
  1. DICLOFENAC SODIUM GEL [Suspect]
     Active Substance: DICLOFENAC SODIUM
     Indication: FACIAL NERVE DISORDER
     Dosage: UNK
     Dates: start: 20181119, end: 20181120

REACTIONS (5)
  - Burning sensation [Recovered/Resolved]
  - Drug intolerance [Recovering/Resolving]
  - Off label use [Unknown]
  - Product administered at inappropriate site [Unknown]
  - Product complaint [Unknown]

NARRATIVE: CASE EVENT DATE: 20181119
